FAERS Safety Report 11295788 (Version 1)
Quarter: 2015Q3

REPORT INFORMATION
  Report Type: Spontaneous
  Country: US (occurrence: US)
  Receive Date: 20150722
  Receipt Date: 20150722
  Transmission Date: 20151125
  Serious: No
  Sender: FDA-Public Use
  Company Number: US-ELI_LILLY_AND_COMPANY-US200906003861

PATIENT
  Age: 76 Year
  Sex: Female

DRUGS (2)
  1. EVISTA [Suspect]
     Active Substance: RALOXIFENE HYDROCHLORIDE
     Dosage: 60 MG, DAILY (1/D)
     Route: 065
  2. PRILOSEC [Concomitant]
     Active Substance: OMEPRAZOLE MAGNESIUM
     Dosage: UNK, UNKNOWN
     Route: 065

REACTIONS (3)
  - Vitamin D decreased [Unknown]
  - Malabsorption [Unknown]
  - Therapeutic response decreased [Unknown]
